FAERS Safety Report 5422379-4 (Version None)
Quarter: 2007Q3

REPORT INFORMATION
  Report Type: 
  Country: None (occurrence: None)
  Receive Date: 20070822
  Receipt Date: 20070820
  Transmission Date: 20080115
  Serious: Yes (Death, Hospitalization)
  Sender: FDA-Public Use
  Company Number: A0662269A

PATIENT
  Age: 72 Year
  Sex: Female

DRUGS (1)
  1. TYKERB [Suspect]
     Indication: BREAST CANCER
     Dosage: 250MG UNKNOWN
     Route: 048
     Dates: start: 20070514, end: 20070609

REACTIONS (4)
  - APHASIA [None]
  - BREAST CANCER [None]
  - COORDINATION ABNORMAL [None]
  - ENCEPHALITIS [None]
